FAERS Safety Report 4426367-6 (Version None)
Quarter: 2004Q3

REPORT INFORMATION
  Report Type: 
  Country: None (occurrence: None)
  Receive Date: 20040811
  Receipt Date: 20040721
  Transmission Date: 20050211
  Serious: Yes (Hospitalization)
  Sender: FDA-Public Use
  Company Number: A01200402019

PATIENT
  Age: 73 Year
  Sex: Female

DRUGS (3)
  1. PLAVIX [Suspect]
     Indication: PROPHYLAXIS
     Dosage: 75 MG QD ORAL
     Route: 048
     Dates: start: 20040402, end: 20040408
  2. CAPTOPRIL [Concomitant]
  3. CEFIXIME [Concomitant]

REACTIONS (3)
  - CEREBROVASCULAR ACCIDENT [None]
  - PANCREATITIS [None]
  - RENAL FAILURE ACUTE [None]
